FAERS Safety Report 8831057 (Version 2)
Quarter: 2013Q2

REPORT INFORMATION
  Report Type: Report from Study
  Country: BR (occurrence: BR)
  Receive Date: 20121009
  Receipt Date: 20130502
  Transmission Date: 20140414
  Serious: Yes (Other)
  Sender: FDA-Public Use
  Company Number: PHHY2012BR088466

PATIENT
  Sex: Female

DRUGS (5)
  1. DIOVAN AMLO FIX [Suspect]
     Indication: HYPERTENSION
     Dosage: 2 DF (160/5 MG), PER DAY
     Route: 048
  2. GALVUS MET [Concomitant]
     Indication: DIABETES MELLITUS
     Dosage: 2 DF (850/50 MG), PER DAY
     Route: 048
  3. VALSARTAN [Concomitant]
     Indication: BLOOD CHOLESTEROL
     Dosage: 2 DF (50 MG), PER DAY
     Route: 048
  4. SIMVASTATIN [Concomitant]
     Indication: BLOOD CHOLESTEROL
     Dosage: 1 DF (25 MG), PER DAY
     Route: 048
  5. SELOZOK [Concomitant]
     Indication: CARDIAC DISORDER
     Dosage: 2 DF (50 MG), PER DAY
     Route: 048

REACTIONS (2)
  - Diabetes mellitus [Unknown]
  - Dysgeusia [Not Recovered/Not Resolved]
